FAERS Safety Report 4816579-1 (Version None)
Quarter: 2005Q4

REPORT INFORMATION
  Report Type: 
  Country: None (occurrence: None)
  Receive Date: 20051028
  Receipt Date: 20051011
  Transmission Date: 20060501
  Serious: Yes (Other)
  Sender: FDA-Public Use
  Company Number: PAR_0380_2005

PATIENT
  Age: 66 Year
  Sex: Female
  Weight: 48.9885 kg

DRUGS (1)
  1. IMIPRAMINE [Suspect]
     Indication: POLLAKIURIA
     Dosage: 10 MG NIGHTLY PO
     Route: 048
     Dates: start: 20040101, end: 20040101

REACTIONS (1)
  - MORBID THOUGHTS [None]
